FAERS Safety Report 22022389 (Version 6)
Quarter: 2024Q2

REPORT INFORMATION
  Report Type: Spontaneous
  Country: US (occurrence: US)
  Receive Date: 20230222
  Receipt Date: 20240528
  Transmission Date: 20240716
  Serious: Yes (Other)
  Sender: FDA-Public Use
  Company Number: US-PFIZER INC-PV202300029694

PATIENT
  Age: 80 Year
  Sex: Male

DRUGS (6)
  1. INLYTA [Suspect]
     Active Substance: AXITINIB
     Indication: Renal cell carcinoma
     Dosage: TAKE 2 TABLETS (2MG) BY MOUTH Q (EVERY) 12 HR
     Route: 048
  2. INLYTA [Suspect]
     Active Substance: AXITINIB
     Dosage: 7 MG
     Dates: end: 20230212
  3. INLYTA [Suspect]
     Active Substance: AXITINIB
     Dosage: DIRECTIONS/DOSING INSTRUCTIONS: TAKE 1 TABLET (5MG) BY MOUTH EVERY 12 HOURS
     Route: 048
  4. INLYTA [Suspect]
     Active Substance: AXITINIB
     Dosage: TAKE 2 TABLETS (10 MG) BY MOUTH Q 12 HR
     Route: 048
  5. NEURONTIN [Concomitant]
     Active Substance: GABAPENTIN
     Dosage: 300 MG, 1X/DAY
     Route: 048
  6. VIAGRA [Concomitant]
     Active Substance: SILDENAFIL CITRATE
     Dosage: 0.5-1 TABLETS AS NEEDED
     Route: 048

REACTIONS (1)
  - Blindness [Not Recovered/Not Resolved]

NARRATIVE: CASE EVENT DATE: 20230201
